FAERS Safety Report 7860481-8 (Version None)
Quarter: 2011Q4

REPORT INFORMATION
  Report Type: 
  Country: None (occurrence: None)
  Receive Date: 20111027
  Receipt Date: 20111025
  Transmission Date: 20120403
  Serious: Yes (Death, Hospitalization)
  Sender: FDA-Public Use
  Company Number: PHHY2010DE63649

PATIENT
  Sex: Female
  Weight: 80 kg

DRUGS (4)
  1. BISOPROLOL [Concomitant]
     Indication: HYPERTENSION
     Dosage: 1 DF, BID
  2. RASILEZ [Suspect]
     Indication: HYPERTENSION
     Dosage: 1 DF, QD
     Route: 048
     Dates: start: 20100501, end: 20100704
  3. DIOVAN [Concomitant]
     Indication: HYPERTENSION
     Dosage: 1 DF, QD
  4. TORSEMIDE [Concomitant]
     Indication: HYPERTENSION
     Dosage: 1 DF, QD

REACTIONS (19)
  - BLOOD ALKALINE PHOSPHATASE INCREASED [None]
  - GENERAL PHYSICAL HEALTH DETERIORATION [None]
  - ENCEPHALOPATHY [None]
  - PLATELET COUNT DECREASED [None]
  - BLOOD BILIRUBIN INCREASED [None]
  - PRURITUS [None]
  - FATIGUE [None]
  - WHITE BLOOD CELL COUNT INCREASED [None]
  - JAUNDICE [None]
  - ALANINE AMINOTRANSFERASE INCREASED [None]
  - ASPARTATE AMINOTRANSFERASE INCREASED [None]
  - ASCITES [None]
  - HEPATIC FAILURE [None]
  - PROTHROMBIN TIME PROLONGED [None]
  - MENTAL STATUS CHANGES [None]
  - URINE COLOUR ABNORMAL [None]
  - FAECES PALE [None]
  - INFECTION [None]
  - GAMMA-GLUTAMYLTRANSFERASE INCREASED [None]
